FAERS Safety Report 6807759-4 (Version None)
Quarter: 2010Q2

REPORT INFORMATION
  Report Type: 
  Country: None (occurrence: None)
  Receive Date: 20100629
  Receipt Date: 20090109
  Transmission Date: 20101027
  Serious: No
  Sender: FDA-Public Use
  Company Number: US-PFIZER INC-2008101029

PATIENT
  Sex: Male
  Weight: 86.4 kg

DRUGS (5)
  1. VIAGRA [Suspect]
     Indication: ERECTILE DYSFUNCTION
     Dosage: 100 MG, UNK
     Route: 048
     Dates: start: 20081101
  2. MIRTAZAPINE [Concomitant]
  3. ZYPREXA [Concomitant]
  4. ENALAPRIL MALEATE [Concomitant]
  5. DESVENLAFAXINE [Concomitant]

REACTIONS (4)
  - ERYTHEMA [None]
  - FEELING ABNORMAL [None]
  - MEDICATION ERROR [None]
  - OCULAR HYPERAEMIA [None]
